FAERS Safety Report 5624888-1 (Version None)
Quarter: 2008Q1

REPORT INFORMATION
  Report Type: 
  Country: None (occurrence: None)
  Receive Date: 20080213
  Receipt Date: 20070410
  Transmission Date: 20080703
  Serious: Yes (Other)
  Sender: FDA-Public Use
  Company Number: US-ASTRAZENECA-2007UW02092

PATIENT
  Age: 42 Year
  Sex: Female
  Weight: 106.4 kg

DRUGS (4)
  1. SEROQUEL [Suspect]
     Indication: BIPOLAR DISORDER
     Dosage: UP TO 300 MG
     Route: 048
     Dates: start: 20030401, end: 20061101
  2. SEROQUEL [Suspect]
     Indication: ANXIETY
     Dosage: UP TO 300 MG
     Route: 048
     Dates: start: 20030401, end: 20061101
  3. SEROQUEL [Suspect]
     Indication: INSOMNIA
     Dosage: UP TO 300 MG
     Route: 048
     Dates: start: 20030401, end: 20061101
  4. RISPERDAL [Concomitant]
     Dosage: 0.25 MG TO 1.0 MG
     Dates: start: 20030401, end: 20041001

REACTIONS (7)
  - ASTHMA [None]
  - CARPAL TUNNEL SYNDROME [None]
  - CERVICAL MYELOPATHY [None]
  - DIABETIC NEUROPATHY [None]
  - OEDEMA [None]
  - RESTLESS LEGS SYNDROME [None]
  - TYPE 1 DIABETES MELLITUS [None]
